FAERS Safety Report 9259229 (Version 3)
Quarter: 2013Q2

REPORT INFORMATION
  Report Type: Spontaneous
  Country: CN (occurrence: CN)
  Receive Date: 20130426
  Receipt Date: 20130603
  Transmission Date: 20140414
  Serious: Yes (Hospitalization)
  Sender: FDA-Public Use
  Company Number: CN-GILEAD-2013-0074210

PATIENT
  Sex: Male

DRUGS (6)
  1. HEPSERA [Suspect]
     Indication: CHRONIC HEPATITIS B
     Dosage: 1 DF, QD
     Route: 048
     Dates: start: 2011
  2. HEPTODIN [Suspect]
     Indication: CHRONIC HEPATITIS B
     Dosage: 1TAB PER DAY
     Route: 048
     Dates: start: 2009, end: 2013
  3. PROPRANOLOL HYDROCHLORIDE [Concomitant]
     Dosage: 1 DF, QD
     Route: 048
  4. PROPRANOLOL HYDROCHLORIDE [Concomitant]
     Dosage: 1TAB PER DAY
     Route: 048
  5. PROPRANOLOL HYDROCHLORIDE [Concomitant]
     Dosage: 1TAB PER DAY
     Route: 048
  6. ADEFOVIR DIPIVOXIL [Concomitant]
     Dosage: UNK
     Route: 048
     Dates: start: 2011, end: 2011

REACTIONS (7)
  - Plasma cell myeloma [Unknown]
  - Abasia [Unknown]
  - Spondylitis [Unknown]
  - Spleen disorder [Unknown]
  - Pain [Not Recovered/Not Resolved]
  - Thrombocytopenia [Unknown]
  - Chest pain [Not Recovered/Not Resolved]
